FAERS Safety Report 23173751 (Version 1)
Quarter: 2023Q4

REPORT INFORMATION
  Report Type: Spontaneous
  Country: DE (occurrence: DE)
  Receive Date: 20231111
  Receipt Date: 20231111
  Transmission Date: 20240110
  Serious: Yes (Other)
  Sender: FDA-Public Use
  Company Number: None

PATIENT
  Age: 56 Year
  Sex: Male
  Weight: 90 kg

DRUGS (3)
  1. SPIRONOLACTONE [Interacting]
     Active Substance: SPIRONOLACTONE
     Indication: Renal failure
     Dosage: 25MG 1-0-0
     Route: 048
     Dates: start: 20230714, end: 20230808
  2. RAMIPRIL [Interacting]
     Active Substance: RAMIPRIL
     Indication: Product used for unknown indication
  3. TORSEMIDE [Interacting]
     Active Substance: TORSEMIDE
     Indication: Renal failure

REACTIONS (7)
  - Delirium [Recovering/Resolving]
  - Tetany [Recovering/Resolving]
  - Metabolic acidosis [Recovering/Resolving]
  - Hypochloraemia [Recovering/Resolving]
  - Disturbance in attention [Recovering/Resolving]
  - Drug interaction [Unknown]
  - Product use in unapproved indication [Unknown]

NARRATIVE: CASE EVENT DATE: 20230714
